FAERS Safety Report 6132875-2 (Version None)
Quarter: 2009Q1

REPORT INFORMATION
  Report Type: 
  Country: None (occurrence: None)
  Receive Date: 20090326
  Receipt Date: 20090217
  Transmission Date: 20090719
  Serious: No
  Sender: FDA-Public Use
  Company Number: US-BAYER-200913588NA

PATIENT
  Age: 45 Year
  Sex: Female

DRUGS (1)
  1. YAZ [Suspect]
     Indication: HORMONE LEVEL ABNORMAL
     Route: 048
     Dates: start: 20060101, end: 20081201

REACTIONS (5)
  - HOT FLUSH [None]
  - MOOD SWINGS [None]
  - NO ADVERSE EVENT [None]
  - WEIGHT DECREASED [None]
  - WEIGHT INCREASED [None]
